FAERS Safety Report 8303068-5 (Version None)
Quarter: 2012Q2

REPORT INFORMATION
  Report Type: 
  Country: None (occurrence: None)
  Receive Date: 20120422
  Receipt Date: 20120411
  Transmission Date: 20120825
  Serious: Yes (Hospitalization)
  Sender: FDA-Public Use
  Company Number: GB-BRISTOL-MYERS SQUIBB COMPANY-16215568

PATIENT
  Age: 45 Year
  Sex: Female

DRUGS (1)
  1. ABILIFY [Suspect]

REACTIONS (5)
  - WEIGHT INCREASED [None]
  - DYSPNOEA [None]
  - MEMORY IMPAIRMENT [None]
  - DELUSION [None]
  - HEART RATE INCREASED [None]
